FAERS Safety Report 6906457-6 (Version None)
Quarter: 2010Q3

REPORT INFORMATION
  Report Type: 
  Country: None (occurrence: None)
  Receive Date: 20100722
  Receipt Date: 20100707
  Transmission Date: 20110219
  Serious: Yes (Hospitalization)
  Sender: FDA-Public Use
  Company Number: IDR-00395

PATIENT
  Age: 83 Year
  Sex: Female

DRUGS (3)
  1. INDERAL [Suspect]
     Dosage: 10 MG QD ORAL FORMULATION: CAPSULE CONTR REL
     Route: 048
  2. (METILDIGOXIN) [Concomitant]
  3. (KANZO-TO) [Concomitant]

REACTIONS (2)
  - HYPOGLYCAEMIA [None]
  - LOSS OF CONSCIOUSNESS [None]
